FAERS Safety Report 4516705-8 (Version None)
Quarter: 2004Q4

REPORT INFORMATION
  Report Type: 
  Country: None (occurrence: None)
  Receive Date: 20041005
  Receipt Date: 20040621
  Transmission Date: 20050328
  Serious: Yes (Hospitalization)
  Sender: FDA-Public Use
  Company Number: 001791

PATIENT
  Age: 31 Year
  Sex: Female
  Weight: 86.2 kg

DRUGS (3)
  1. SEASONALE [Suspect]
     Indication: ORAL CONTRACEPTION
     Dosage: 1.00 TABLET, QD, ORAL
     Route: 048
     Dates: start: 20040428, end: 20040608
  2. ZYRTEC [Concomitant]
  3. SINGULAIR    ^MERCK^   (MONTELUKAST SODIUM) [Concomitant]

REACTIONS (1)
  - PULMONARY EMBOLISM [None]
